FAERS Safety Report 4704658-9 (Version None)
Quarter: 2005Q2

REPORT INFORMATION
  Report Type: 
  Country: None (occurrence: None)
  Receive Date: 20050629
  Receipt Date: 20050621
  Transmission Date: 20051028
  Serious: Yes (Other)
  Sender: FDA-Public Use
  Company Number: 2005-04-2013

PATIENT
  Age: 69 Year
  Sex: Male
  Weight: 75 kg

DRUGS (10)
  1. REBETOL [Suspect]
     Indication: HEPATITIS C
     Dosage: SEE IMAGE
     Route: 048
     Dates: start: 20050207, end: 20050426
  2. REBETOL [Suspect]
     Indication: HEPATITIS C
     Dosage: SEE IMAGE
     Route: 048
     Dates: start: 20050207
  3. REBETOL [Suspect]
     Indication: HEPATITIS C
     Dosage: SEE IMAGE
     Route: 048
     Dates: start: 20050427
  4. INTRON A [Suspect]
     Dosage: SEE IMAGE
     Route: 030
     Dates: start: 20050207, end: 20050219
  5. INTRON A [Suspect]
     Dosage: SEE IMAGE
     Route: 030
     Dates: start: 20050221, end: 20050423
  6. INTRON A [Suspect]
     Dosage: SEE IMAGE
     Route: 030
     Dates: start: 20050502, end: 20050505
  7. INTRON A [Suspect]
     Dosage: SEE IMAGE
     Route: 030
     Dates: start: 20050207
  8. INTRON A [Suspect]
     Dosage: SEE IMAGE
     Route: 030
     Dates: start: 20050507
  9. HARNAL (TAMSULOSIN HYDROCHLORIDE) [Concomitant]
  10. THYRADIN [Concomitant]

REACTIONS (10)
  - BLOOD PRESSURE DECREASED [None]
  - BLOOD THYROID STIMULATING HORMONE DECREASED [None]
  - DIZZINESS [None]
  - FALL [None]
  - LOSS OF CONSCIOUSNESS [None]
  - NUCLEAR MAGNETIC RESONANCE IMAGING BRAIN ABNORMAL [None]
  - SUPRAVENTRICULAR EXTRASYSTOLES [None]
  - SYNCOPE [None]
  - THYROXINE FREE DECREASED [None]
  - VENTRICULAR EXTRASYSTOLES [None]
